FAERS Safety Report 6073310-2 (Version None)
Quarter: 2009Q1

REPORT INFORMATION
  Report Type: 
  Country: None (occurrence: None)
  Receive Date: 20090206
  Receipt Date: 20090128
  Transmission Date: 20090719
  Serious: Yes (Hospitalization)
  Sender: FDA-Public Use
  Company Number: MSTR-NO-0902S-0034

PATIENT
  Age: 45 Year
  Sex: Female
  Weight: 43.9 kg

DRUGS (1)
  1. METASTRON [Suspect]
     Indication: METASTATIC PAIN
     Dosage: 81.8 MBQ, SINGLE DOSE, 1.V.
     Route: 042
     Dates: start: 20080812, end: 20080812

REACTIONS (2)
  - MALAISE [None]
  - NAUSEA [None]
